FAERS Safety Report 19184771 (Version 1)
Quarter: 2021Q2

REPORT INFORMATION
  Report Type: Spontaneous
  Country: GB (occurrence: GB)
  Receive Date: 20210427
  Receipt Date: 20210427
  Transmission Date: 20210717
  Serious: Yes (Disabling, Other)
  Sender: FDA-Public Use
  Company Number: GB-PFIZER INC-2021422716

PATIENT
  Age: 40 Year
  Sex: Female
  Weight: 85 kg

DRUGS (7)
  1. BETAMETHASONE VALERATE. [Concomitant]
     Active Substance: BETAMETHASONE VALERATE
     Dosage: UNK
     Route: 061
     Dates: start: 20210128, end: 20210225
  2. SULFASALAZINE. [Suspect]
     Active Substance: SULFASALAZINE
     Dosage: 1000 MG, 2X/DAY
     Route: 048
     Dates: start: 20210318, end: 20210412
  3. MICONAZOLE. [Concomitant]
     Active Substance: MICONAZOLE
     Dosage: 1 DF, 2X/DAY FOR 7 DAYS
     Route: 061
     Dates: start: 20210202, end: 20210222
  4. ALPHOSYL HC [ALLANTOIN;COAL TAR;HYDROCORTISONE] [Concomitant]
     Dosage: 1 DF, 1X/DAY
     Dates: start: 20190725, end: 20210318
  5. CLARITHROMYCIN. [Concomitant]
     Active Substance: CLARITHROMYCIN
     Dosage: 1 DF, 2X/DAY
     Route: 048
     Dates: start: 20210406
  6. SALBUTAMOL [Concomitant]
     Active Substance: ALBUTEROL
     Dosage: 2 DF
     Route: 055
     Dates: start: 20190725
  7. SERETIDE [Concomitant]
     Active Substance: FLUTICASONE PROPIONATE\SALMETEROL XINAFOATE
     Dosage: 2 DF, 2X/DAY
     Route: 055
     Dates: start: 20190725

REACTIONS (5)
  - Chest discomfort [Recovered/Resolved]
  - Headache [Recovered/Resolved]
  - Pyrexia [Recovered/Resolved]
  - Lymphadenopathy [Recovered/Resolved]
  - Arthralgia [Unknown]
